FAERS Safety Report 18176415 (Version 7)
Quarter: 2021Q3

REPORT INFORMATION
  Report Type: Report from Study
  Country: US (occurrence: US)
  Receive Date: 20200820
  Receipt Date: 20210802
  Transmission Date: 20211014
  Serious: Yes (Hospitalization, Other)
  Sender: FDA-Public Use
  Company Number: US-SHIRE-US202026753

PATIENT
  Age: 35 Year
  Sex: Female

DRUGS (6)
  1. PARATHYROID HORMONE [Suspect]
     Active Substance: PARATHYROID HORMONE
     Indication: HYPOPARATHYROIDISM
     Dosage: 75 MICROGRAM, QD
     Route: 058
     Dates: start: 20190226
  2. PARATHYROID HORMONE [Suspect]
     Active Substance: PARATHYROID HORMONE
     Indication: HYPOPARATHYROIDISM
     Dosage: 75 MICROGRAM, QD
     Route: 058
     Dates: start: 20190226
  3. PARATHYROID HORMONE [Suspect]
     Active Substance: PARATHYROID HORMONE
     Dosage: ONCE DAILY INJECTION
     Route: 058
     Dates: start: 20210715
  4. PARATHYROID HORMONE [Suspect]
     Active Substance: PARATHYROID HORMONE
     Dosage: ONCE DAILY INJECTION
     Route: 058
     Dates: start: 20210715
  5. PARATHYROID HORMONE [Suspect]
     Active Substance: PARATHYROID HORMONE
     Dosage: ONCE DAILY INJECTION
     Route: 058
     Dates: start: 20210715
  6. PARATHYROID HORMONE [Suspect]
     Active Substance: PARATHYROID HORMONE
     Indication: HYPOPARATHYROIDISM
     Dosage: 75 MICROGRAM, QD
     Route: 058
     Dates: start: 20190226

REACTIONS (9)
  - Suicide attempt [Not Recovered/Not Resolved]
  - Product availability issue [Unknown]
  - Mental disorder [Recovering/Resolving]
  - Gilbert^s syndrome [Not Recovered/Not Resolved]
  - Product dose omission issue [Recovered/Resolved]
  - Blood calcium decreased [Not Recovered/Not Resolved]
  - Myocarditis infectious [Unknown]
  - Hepatic enzyme increased [Unknown]
  - Breast cancer recurrent [Not Recovered/Not Resolved]

NARRATIVE: CASE EVENT DATE: 20200813
